FAERS Safety Report 17118415 (Version 1)
Quarter: 2019Q4

REPORT INFORMATION
  Report Type: Spontaneous
  Country: CA (occurrence: CA)
  Receive Date: 20191205
  Receipt Date: 20191205
  Transmission Date: 20200122
  Serious: Yes (Hospitalization, Other)
  Sender: FDA-Public Use
  Company Number: CA-ABBVIE-19K-028-3181239-00

PATIENT
  Age: 53 Year
  Sex: Male

DRUGS (1)
  1. VENETOCLAX. [Suspect]
     Active Substance: VENETOCLAX
     Indication: PRODUCT USED FOR UNKNOWN INDICATION
     Route: 048
     Dates: end: 2019

REACTIONS (7)
  - Nausea [Unknown]
  - Richter^s syndrome [Unknown]
  - Vomiting [Unknown]
  - Hypertension [Unknown]
  - General physical health deterioration [Unknown]
  - Chronic lymphocytic leukaemia [Unknown]
  - Dysphagia [Unknown]

NARRATIVE: CASE EVENT DATE: 2019
